FAERS Safety Report 9778396 (Version 1)
Quarter: 2013Q4

REPORT INFORMATION
  Report Type: Spontaneous
  Country: US (occurrence: None)
  Receive Date: 20131219
  Receipt Date: 20131219
  Transmission Date: 20140711
  Serious: Yes (Other)
  Sender: FDA-Public Use
  Company Number: AE-2205

PATIENT
  Age: 62 Year
  Sex: Female

DRUGS (12)
  1. LEVETIRACETAM [Suspect]
     Indication: CONVULSION
     Dosage: 1 TAB TWICE DAILY + ORAL
     Route: 048
  2. ANASTRAZOLE [Concomitant]
  3. METFORMIN [Concomitant]
  4. SIMVASTATIN [Concomitant]
  5. LOFIBRA [Concomitant]
  6. DONEPEZIL [Concomitant]
  7. PROPRANOLOL ER 60 MG [Concomitant]
  8. ZIPRASIDONE [Concomitant]
  9. SALSALATE [Concomitant]
  10. DIVALPROEX [Concomitant]
  11. VALPROIC ACID [Concomitant]
  12. ALPRAZOLAM [Concomitant]

REACTIONS (4)
  - Accidental death [None]
  - Intentional drug misuse [None]
  - Poisoning [None]
  - Drug interaction [None]
